FAERS Safety Report 7154255-3 (Version None)
Quarter: 2010Q4

REPORT INFORMATION
  Report Type: 
  Country: None (occurrence: None)
  Receive Date: 20101213
  Receipt Date: 20101202
  Transmission Date: 20110411
  Serious: Yes (Death, Life-Threatening, Hospitalization)
  Sender: FDA-Public Use
  Company Number: JP-PFIZER INC-2010164229

PATIENT
  Age: 40 Year
  Sex: Female

DRUGS (4)
  1. AZITHROMYCIN [Suspect]
     Indication: OPPORTUNISTIC INFECTION PROPHYLAXIS
     Dosage: UNK
     Route: 048
     Dates: start: 20081225, end: 20100204
  2. STOCRIN [Suspect]
     Indication: HIV INFECTION
     Dosage: UNK
     Route: 048
     Dates: start: 20081225, end: 20100204
  3. EPZICOM [Suspect]
     Indication: HIV INFECTION
     Dosage: 1 DF, UNK
     Route: 048
     Dates: start: 20091120, end: 20100204
  4. TRUVADA [Suspect]
     Indication: HIV INFECTION
     Dosage: 1 DF, UNK
     Route: 048
     Dates: start: 20081225, end: 20091119

REACTIONS (3)
  - DISEASE PROGRESSION [None]
  - DUODENAL STENOSIS [None]
  - PROGRESSIVE MULTIFOCAL LEUKOENCEPHALOPATHY [None]
